FAERS Safety Report 25482513 (Version 3)
Quarter: 2025Q3

REPORT INFORMATION
  Report Type: Spontaneous
  Country: JP (occurrence: JP)
  Receive Date: 20250626
  Receipt Date: 20250716
  Transmission Date: 20251021
  Serious: Yes (Death)
  Sender: ROCHE
  Company Number: JP-CHUGAI-2025020215

PATIENT
  Age: 7 Decade
  Sex: Male
  Weight: 46.9 kg

DRUGS (3)
  1. HEMLIBRA [Suspect]
     Active Substance: EMICIZUMAB-KXWH
     Indication: Haemophilia A without inhibitors
     Dosage: 300 MILLIGRAM, ONCE/MONTH
     Route: 058
     Dates: start: 20240207, end: 20240502
  2. ASPIRIN [Suspect]
     Active Substance: ASPIRIN
     Indication: Product used for unknown indication
     Route: 050
     Dates: start: 20210507, end: 20250523
  3. LEVETIRACETAM [Concomitant]
     Active Substance: LEVETIRACETAM
     Route: 065
     Dates: start: 20210507, end: 20250523

REACTIONS (3)
  - Death [Fatal]
  - Thalamus haemorrhage [Fatal]
  - Haemophilia A without inhibitors [Fatal]

NARRATIVE: CASE EVENT DATE: 20250523
